FAERS Safety Report 11823984 (Version 2)
Quarter: 2016Q1

REPORT INFORMATION
  Report Type: Spontaneous
  Country: JP (occurrence: JP)
  Receive Date: 20151210
  Receipt Date: 20160112
  Transmission Date: 20160525
  Serious: Yes (Other)
  Sender: FDA-Public Use
  Company Number: JP-BAYER-2014-079621

PATIENT
  Age: 42 Year
  Sex: Male

DRUGS (5)
  1. KERATINAMIN [Concomitant]
     Active Substance: UREA
     Route: 061
  2. STIVARGA [Suspect]
     Active Substance: REGORAFENIB
     Indication: GASTROINTESTINAL STROMAL TUMOUR
     Dosage: 160 MG, QD
     Route: 048
     Dates: start: 20140520, end: 20150219
  3. STIVARGA [Suspect]
     Active Substance: REGORAFENIB
     Indication: GASTROINTESTINAL STROMAL TUMOUR
     Dosage: 160 MG, QD
     Route: 048
     Dates: start: 20151127
  4. STIVARGA [Suspect]
     Active Substance: REGORAFENIB
     Indication: GASTROINTESTINAL STROMAL TUMOUR
     Dosage: UNK, QD
     Route: 048
     Dates: start: 201503, end: 2015
  5. DERMOVATE [Concomitant]
     Active Substance: CLOBETASOL
     Route: 061

REACTIONS (4)
  - Angina pectoris [Recovered/Resolved]
  - Loss of consciousness [Recovered/Resolved]
  - Coronary artery stenosis [Recovered/Resolved]
  - Palmar-plantar erythrodysaesthesia syndrome [Not Recovered/Not Resolved]

NARRATIVE: CASE EVENT DATE: 20140520
